FAERS Safety Report 8916658 (Version 1)
Quarter: 2012Q4

REPORT INFORMATION
  Report Type: 
  Country: NL (occurrence: NL)
  Receive Date: 20121120
  Receipt Date: 20121120
  Transmission Date: 20130627
  Serious: Yes (Hospitalization, Other)
  Sender: FDA-Public Use
  Company Number: NL-PFIZER INC-2012207305

PATIENT
  Age: 39 Year
  Sex: Female
  Weight: 64 kg

DRUGS (1)
  1. GENOTROPIN [Suspect]
     Dosage: 0.8 mg, 1x/day, seven injections/week
     Route: 058
     Dates: start: 20050301

REACTIONS (2)
  - Neoplasm malignant [Recovered/Resolved]
  - Musculoskeletal disorder [Unknown]
